FAERS Safety Report 4283641-4 (Version None)
Quarter: 2004Q1

REPORT INFORMATION
  Report Type: 
  Country: None (occurrence: None)
  Receive Date: 20040129
  Receipt Date: 20040129
  Transmission Date: 20041129
  Serious: Yes (Hospitalization)
  Sender: FDA-Public Use
  Company Number: None

PATIENT
  Age: 57 Year
  Sex: Male
  Weight: 93.1 kg

DRUGS (7)
  1. BUMEX [Suspect]
     Indication: GENERALISED OEDEMA
     Dosage: 0.5 MG PO QD
     Route: 048
  2. ALDACTONE [Suspect]
     Indication: GENERALISED OEDEMA
     Dosage: 100 MG PO QD
     Route: 048
  3. HYDROCHLOROTHIAZIDE [Suspect]
     Dosage: 12.5 MG QD
  4. LACTULOSE [Concomitant]
  5. HUMALOG [Concomitant]
  6. POTASSIUM [Concomitant]
  7. LEXAPRO [Concomitant]

REACTIONS (4)
  - DEHYDRATION [None]
  - HEPATIC ENCEPHALOPATHY [None]
  - MENTAL STATUS CHANGES [None]
  - POLYURIA [None]
